FAERS Safety Report 25652482 (Version 1)
Quarter: 2025Q3

REPORT INFORMATION
  Report Type: Report from Study
  Country: CA (occurrence: CA)
  Receive Date: 20250807
  Receipt Date: 20250807
  Transmission Date: 20251020
  Serious: Yes (Hospitalization)
  Sender: AMGEN
  Company Number: CA-Vifor (International) Inc.-VIT-2024-06841

PATIENT
  Age: 72 Year
  Sex: Male

DRUGS (2)
  1. AVACOPAN [Suspect]
     Active Substance: AVACOPAN
     Indication: Anti-neutrophil cytoplasmic antibody positive vasculitis
     Dosage: 30 MG, BID
     Route: 048
     Dates: start: 20240722
  2. AVACOPAN [Suspect]
     Active Substance: AVACOPAN
     Dosage: 30 MG, BID
     Route: 048
     Dates: start: 20240723

REACTIONS (2)
  - Hospitalisation [Unknown]
  - Constipation [Unknown]

NARRATIVE: CASE EVENT DATE: 20240701
